FAERS Safety Report 8384534-3 (Version None)
Quarter: 2012Q2

REPORT INFORMATION
  Report Type: 
  Country: None (occurrence: None)
  Receive Date: 20120524
  Receipt Date: 20120517
  Transmission Date: 20120825
  Serious: Yes (Hospitalization, Other)
  Sender: FDA-Public Use
  Company Number: IT-ABBOTT-12P-083-0904419-00

PATIENT
  Sex: Female

DRUGS (2)
  1. HUMIRA [Suspect]
     Indication: RHEUMATOID ARTHRITIS
     Dosage: CYCLIC
     Route: 058
     Dates: start: 20061102, end: 20111001
  2. ARAVA [Concomitant]
     Indication: RHEUMATOID ARTHRITIS
     Route: 048
     Dates: start: 20111128

REACTIONS (5)
  - POSTOPERATIVE WOUND INFECTION [None]
  - TRACHEAL DISORDER [None]
  - THYROID CANCER [None]
  - VOCAL CORD PARALYSIS [None]
  - LARYNGOSPASM [None]
